FAERS Safety Report 8442766-X (Version None)
Quarter: 2012Q2

REPORT INFORMATION
  Report Type: 
  Country: None (occurrence: None)
  Receive Date: 20120615
  Receipt Date: 20120611
  Transmission Date: 20120825
  Serious: Yes (Other)
  Sender: FDA-Public Use
  Company Number: US-ROCHE-1006964

PATIENT
  Sex: Male
  Weight: 72.458 kg

DRUGS (15)
  1. OMEPRAZOLE [Concomitant]
  2. VITAMIN D [Concomitant]
  3. ZELBORAF [Suspect]
     Route: 065
     Dates: start: 20111011
  4. ZELBORAF [Suspect]
     Indication: METASTATIC MALIGNANT MELANOMA
     Route: 048
     Dates: start: 20110916
  5. ZELBORAF [Suspect]
     Dates: start: 20110812
  6. GLIPIZIDE [Concomitant]
  7. BETAPACE [Concomitant]
  8. ZELBORAF [Suspect]
     Dosage: DURING SECOND CYCLE
  9. ACTOS [Concomitant]
  10. ZELBORAF [Suspect]
     Dosage: DURING FIRST CYCLE
  11. SIMVASTATIN [Concomitant]
  12. METFORMIN HCL [Concomitant]
  13. HYTRIN [Concomitant]
  14. WARFARIN SODIUM [Concomitant]
  15. ZOFRAN [Concomitant]

REACTIONS (16)
  - DIARRHOEA [None]
  - DIZZINESS [None]
  - OEDEMA PERIPHERAL [None]
  - ARTHRALGIA [None]
  - ATRIAL FIBRILLATION [None]
  - RASH [None]
  - VISUAL IMPAIRMENT [None]
  - HAEMOPTYSIS [None]
  - HYPOAESTHESIA [None]
  - MASS [None]
  - EYE IRRITATION [None]
  - DECREASED APPETITE [None]
  - FATIGUE [None]
  - STOMATITIS [None]
  - ALOPECIA [None]
  - HEADACHE [None]
